FAERS Safety Report 8791128 (Version 2)
Quarter: 2013Q3

REPORT INFORMATION
  Report Type: Spontaneous
  Country: US (occurrence: None)
  Receive Date: 20120912
  Receipt Date: 20130927
  Transmission Date: 20140515
  Serious: Yes (Life-Threatening, Hospitalization)
  Sender: FDA-Public Use
  Company Number: AUR-APL-2012-03797

PATIENT
  Age: 40 Year
  Sex: Female
  Weight: 60 kg

DRUGS (10)
  1. FLUOXETINE [Suspect]
     Indication: DEPRESSION
     Route: 048
     Dates: start: 20020801
  2. DOSULEPIN [Suspect]
     Indication: DEPRESSION
     Route: 048
     Dates: start: 20050801, end: 20120813
  3. ROBAXIN [Suspect]
     Indication: BACK PAIN
     Route: 048
     Dates: start: 20120806, end: 20120811
  4. GABAPENTIN (GABAPENTIN) [Concomitant]
  5. LANSOPRAZOLE (LANSOPRAZOLE) [Concomitant]
  6. NAPROXEN (NAPROXEN) [Concomitant]
  7. ORAMORPH (MORPHINE SULFATE) [Concomitant]
  8. PARACETAMOL (PARACETAMOL) [Concomitant]
  9. TRAMADOL (TRAMADOL) [Concomitant]
  10. HALOPERIDOL [Concomitant]

REACTIONS (9)
  - Hypernatraemia [None]
  - Metabolic acidosis [None]
  - Hyperpyrexia [None]
  - Rhabdomyolysis [None]
  - Confusional state [None]
  - Depressed level of consciousness [None]
  - Chills [None]
  - Convulsion [None]
  - Transaminases increased [None]
